FAERS Safety Report 8547551-6 (Version None)
Quarter: 2012Q3

REPORT INFORMATION
  Report Type: 
  Country: None (occurrence: None)
  Receive Date: 20120727
  Receipt Date: 20120330
  Transmission Date: 20120928
  Serious: No
  Sender: FDA-Public Use
  Company Number: US-ASTRAZENECA-2012SE21730

PATIENT
  Age: 30 Year
  Sex: Male

DRUGS (2)
  1. LITHIUM CARBONATE [Concomitant]
  2. SEROQUEL XR [Suspect]
     Indication: BIPOLAR DISORDER
     Route: 048

REACTIONS (3)
  - FEELING ABNORMAL [None]
  - DRUG EFFECT DELAYED [None]
  - DRUG CLEARANCE DECREASED [None]
